FAERS Safety Report 9773683 (Version 1)
Quarter: 2013Q4

REPORT INFORMATION
  Report Type: Spontaneous
  Country: US (occurrence: US)
  Receive Date: 20131219
  Receipt Date: 20131219
  Transmission Date: 20140711
  Serious: No
  Sender: FDA-Public Use
  Company Number: US-MYLANLABS-2013S1026763

PATIENT
  Sex: Female

DRUGS (2)
  1. ATORVASTATIN CALCIUM TABLETS [Suspect]
     Route: 048
     Dates: end: 2013
  2. ATORVASTATIN CALCIUM TABLETS [Suspect]
     Route: 048
     Dates: start: 2013

REACTIONS (2)
  - Memory impairment [Not Recovered/Not Resolved]
  - Aphasia [Not Recovered/Not Resolved]
